FAERS Safety Report 5524664-4 (Version None)
Quarter: 2007Q4

REPORT INFORMATION
  Report Type: 
  Country: None (occurrence: None)
  Receive Date: 20071123
  Receipt Date: 20071114
  Transmission Date: 20080405
  Serious: Yes (Other)
  Sender: FDA-Public Use
  Company Number: US-SHR-US-2007-043323

PATIENT
  Sex: Female

DRUGS (2)
  1. YASMIN [Suspect]
     Indication: ORAL CONTRACEPTION
  2. NSAID'S [Concomitant]
     Indication: SPORTS INJURY
     Dosage: UNK, 3X/DAY

REACTIONS (2)
  - CHEST PAIN [None]
  - HEART RATE IRREGULAR [None]
